FAERS Safety Report 7527959-8 (Version None)
Quarter: 2011Q2

REPORT INFORMATION
  Report Type: 
  Country: None (occurrence: None)
  Receive Date: 20110607
  Receipt Date: 20110527
  Transmission Date: 20111010
  Serious: Yes (Other)
  Sender: FDA-Public Use
  Company Number: US-AMGEN-USASP2011027805

PATIENT
  Age: 50 Year
  Sex: Female

DRUGS (2)
  1. KEPPRA [Concomitant]
     Dosage: 500 MG, QD
  2. SENSIPAR [Suspect]
     Indication: HYPERPARATHYROIDISM SECONDARY
     Dosage: 30 MG, QD

REACTIONS (1)
  - CONVULSION [None]
